FAERS Safety Report 4758214-7 (Version None)
Quarter: 2005Q3

REPORT INFORMATION
  Report Type: 
  Country: None (occurrence: None)
  Receive Date: 20050831
  Receipt Date: 20050601
  Transmission Date: 20060218
  Serious: Yes (Hospitalization)
  Sender: FDA-Public Use
  Company Number: US-MERCK-0506USA00568

PATIENT
  Age: 60 Year
  Sex: Male
  Weight: 114 kg

DRUGS (9)
  1. PROTONIX [Suspect]
     Indication: GASTRIC DISORDER
     Route: 065
  2. VIOXX [Suspect]
     Indication: ARTHRITIS
     Route: 048
     Dates: start: 20020307, end: 20040930
  3. ASPIRIN [Suspect]
     Indication: ARTHRITIS
     Route: 065
  4. ASPIRIN [Suspect]
     Indication: PROPHYLAXIS
     Route: 065
  5. LIPITOR [Suspect]
     Indication: HYPERTENSION
     Route: 065
  6. GLUCOTROL [Suspect]
     Indication: DIABETES MELLITUS
     Route: 065
  7. ZESTORETIC [Suspect]
     Indication: HYPERTENSION
     Route: 048
  8. AVAPRO [Concomitant]
     Indication: CARDIOMYOPATHY
     Route: 065
     Dates: start: 20010101, end: 20050301
  9. AVAPRO [Concomitant]
     Route: 065

REACTIONS (14)
  - ANIMAL BITE [None]
  - ATHEROSCLEROSIS [None]
  - CARDIAC DISORDER [None]
  - CARDIAC VALVE DISEASE [None]
  - DYSPNOEA [None]
  - EMOTIONAL DISTRESS [None]
  - GASTRIC HAEMORRHAGE [None]
  - HAEMATOCHEZIA [None]
  - HERNIA [None]
  - MYOCARDIAL INFARCTION [None]
  - PEPTIC ULCER [None]
  - ROAD TRAFFIC ACCIDENT [None]
  - SWELLING [None]
  - THROMBOSIS [None]
